FAERS Safety Report 7999738-9 (Version None)
Quarter: 2011Q4

REPORT INFORMATION
  Report Type: 
  Country: None (occurrence: None)
  Receive Date: 20111221
  Receipt Date: 20111216
  Transmission Date: 20120403
  Serious: Yes (Death)
  Sender: FDA-Public Use
  Company Number: US-ASTRAZENECA-2011SE76583

PATIENT
  Age: 87 Year
  Sex: Female

DRUGS (8)
  1. ALPRAZOLAM [Suspect]
     Route: 048
  2. HYDRALAZINE HCL [Suspect]
     Route: 048
  3. NITROGLYCERIN [Suspect]
     Route: 048
  4. METOPROLOL SUCCINATE EXTENDED RELEASE [Suspect]
     Route: 048
  5. LEVOTHYROXINE SODIUM [Suspect]
     Route: 048
  6. COLCHICINE [Suspect]
     Route: 048
  7. ZOLPIDEM [Suspect]
     Route: 048
  8. ACETAMINOPHEN WITH PROPOXYPHENE HCL TAB [Suspect]
     Route: 048

REACTIONS (2)
  - COMPLETED SUICIDE [None]
  - TOXICITY TO VARIOUS AGENTS [None]
